FAERS Safety Report 19588728 (Version 1)
Quarter: 2021Q3

REPORT INFORMATION
  Report Type: Spontaneous
  Country: US (occurrence: US)
  Receive Date: 20210721
  Receipt Date: 20210721
  Transmission Date: 20211014
  Serious: Yes (Other)
  Sender: FDA-Public Use
  Company Number: US-SUN PHARMACEUTICAL INDUSTRIES LTD-2021R1-304660

PATIENT
  Age: 52 Year
  Sex: Male

DRUGS (3)
  1. PEMBROLIZUMAB. [Suspect]
     Active Substance: PEMBROLIZUMAB
     Indication: LUNG ADENOCARCINOMA
     Dosage: 3 CYCLES
     Route: 065
     Dates: start: 2018
  2. CARBOPLATIN. [Suspect]
     Active Substance: CARBOPLATIN
     Indication: LUNG ADENOCARCINOMA
     Dosage: 3 CYCLES
     Route: 065
     Dates: start: 2018
  3. PEMETREXED. [Suspect]
     Active Substance: PEMETREXED
     Indication: LUNG ADENOCARCINOMA
     Dosage: 3 CYCLES
     Route: 065
     Dates: start: 2018

REACTIONS (6)
  - Therapy partial responder [Unknown]
  - Vision blurred [Unknown]
  - Fatigue [Unknown]
  - Type 1 diabetes mellitus [Recovering/Resolving]
  - Polyuria [Unknown]
  - Polydipsia [Unknown]
